FAERS Safety Report 9966412 (Version 2)
Quarter: 2014Q1

REPORT INFORMATION
  Report Type: Report from Study
  Country: US (occurrence: US)
  Receive Date: 20140305
  Receipt Date: 20140305
  Transmission Date: 20141002
  Serious: No
  Sender: FDA-Public Use
  Company Number: US-ABBVIE-13P-163-1110736-00

PATIENT
  Age: 58 Year
  Sex: Female

DRUGS (12)
  1. HUMIRA [Suspect]
     Indication: PSORIATIC ARTHROPATHY
     Dates: start: 20130620
  2. METHOTREXATE [Concomitant]
     Indication: PSORIATIC ARTHROPATHY
     Dosage: 6 PILLS WEEKLY
  3. PREDNISONE [Concomitant]
     Indication: PSORIATIC ARTHROPATHY
     Dosage: 2 DAILY TAPERING DOSE TO ONE DAILY
  4. ATENOLOL [Concomitant]
     Indication: HYPERTENSION
  5. BUMETANIDE [Concomitant]
     Indication: FLUID RETENTION
  6. CLARITIN [Concomitant]
     Indication: SEASONAL ALLERGY
  7. ALLOPURINOL [Concomitant]
     Indication: GOUT
  8. VITAMINS [Concomitant]
     Indication: PRODUCT USED FOR UNKNOWN INDICATION
  9. METFORMIN [Concomitant]
     Indication: DIABETES MELLITUS
  10. FOLIC ACID [Concomitant]
     Indication: PRODUCT USED FOR UNKNOWN INDICATION
  11. FOLIC ACID [Concomitant]
  12. ONDANSETRON HCL [Concomitant]
     Indication: ABDOMINAL DISCOMFORT

REACTIONS (4)
  - Injection site pain [Recovered/Resolved]
  - Nausea [Unknown]
  - Injection site pain [Not Recovered/Not Resolved]
  - Injection site reaction [Not Recovered/Not Resolved]
